FAERS Safety Report 21844596 (Version 40)
Quarter: 2025Q1

REPORT INFORMATION
  Report Type: Spontaneous
  Country: AU (occurrence: AU)
  Receive Date: 20230110
  Receipt Date: 20250325
  Transmission Date: 20250409
  Serious: Yes (Hospitalization, Other)
  Sender: MYLAN
  Company Number: AU-MYLANLABS-2022M1125562

PATIENT
  Age: 64 Year
  Sex: Female

DRUGS (5)
  1. CLOZARIL [Suspect]
     Active Substance: CLOZAPINE
     Indication: Schizophrenia
  2. CLOZARIL [Suspect]
     Active Substance: CLOZAPINE
  3. CLOZARIL [Suspect]
     Active Substance: CLOZAPINE
  4. CLOZARIL [Suspect]
     Active Substance: CLOZAPINE
  5. CLOZARIL [Suspect]
     Active Substance: CLOZAPINE

REACTIONS (8)
  - Hospitalisation [Unknown]
  - Chronic lymphocytic leukaemia [Unknown]
  - Leukocytosis [Recovering/Resolving]
  - Pneumonia [Unknown]
  - COVID-19 [Unknown]
  - Neutrophil count decreased [Not Recovered/Not Resolved]
  - Lymphocytosis [Unknown]
  - Therapy interrupted [Unknown]

NARRATIVE: CASE EVENT DATE: 20221107
